FAERS Safety Report 25272811 (Version 1)
Quarter: 2025Q2

REPORT INFORMATION
  Report Type: Spontaneous
  Country: DE (occurrence: DE)
  Receive Date: 20250506
  Receipt Date: 20250506
  Transmission Date: 20250716
  Serious: Yes (Other)
  Sender: BAXTER
  Company Number: None

PATIENT
  Age: 44 Year
  Sex: Female

DRUGS (8)
  1. PROPOFOL [Suspect]
     Active Substance: PROPOFOL
     Route: 042
     Dates: start: 20150421
  2. ENOXAPARIN SODIUM [Suspect]
     Active Substance: ENOXAPARIN SODIUM
     Route: 065
     Dates: start: 20150421
  3. SUFENTA [Concomitant]
     Active Substance: SUFENTANIL CITRATE
     Route: 042
     Dates: start: 20150421
  4. URAPIDIL [Concomitant]
     Active Substance: URAPIDIL
     Route: 042
     Dates: start: 20150421
  5. AMOXICILLIN\SULBACTAM [Concomitant]
     Active Substance: AMOXICILLIN\SULBACTAM
     Route: 042
     Dates: start: 20150421
  6. URAPIDIL [Concomitant]
     Active Substance: URAPIDIL
     Route: 048
     Dates: start: 20150422
  7. Delix [Concomitant]
     Route: 048
     Dates: start: 20150421
  8. NEXIUM [Concomitant]
     Active Substance: ESOMEPRAZOLE MAGNESIUM
     Route: 065
     Dates: start: 20150422

REACTIONS (6)
  - Haemorrhage urinary tract [Unknown]
  - Cerebral haemorrhage [Unknown]
  - Condition aggravated [Unknown]
  - Product communication issue [Unknown]
  - Contraindicated product administered [Unknown]
  - Labelled drug-disease interaction issue [Unknown]

NARRATIVE: CASE EVENT DATE: 20150422
